FAERS Safety Report 18171471 (Version 1)
Quarter: 2020Q3

REPORT INFORMATION
  Report Type: Report from Study
  Country: US (occurrence: US)
  Receive Date: 20200819
  Receipt Date: 20200819
  Transmission Date: 20201103
  Serious: No
  Sender: FDA-Public Use
  Company Number: US-AEGERION PHARMACEUTICAL, INC-AEGR004450

PATIENT
  Age: 52 Year
  Sex: Male

DRUGS (51)
  1. BUMEX [Concomitant]
     Active Substance: BUMETANIDE
     Dosage: 2 MG, TID
     Route: 048
     Dates: start: 20180402
  2. COLACE [Concomitant]
     Active Substance: DOCUSATE SODIUM
     Indication: POST PROCEDURAL CONSTIPATION
     Dosage: 100 MG, QD
     Route: 048
     Dates: start: 20171221, end: 20180102
  3. K?DUR [Concomitant]
     Active Substance: POTASSIUM CHLORIDE
     Indication: BLOOD POTASSIUM DECREASED
     Dosage: 20 MEQ, BID
     Route: 048
     Dates: start: 20180213, end: 20180312
  4. LASIX [Concomitant]
     Active Substance: FUROSEMIDE
     Indication: FLUID RETENTION
     Dosage: 40 MG, BID
     Route: 048
     Dates: start: 20180213, end: 20180219
  5. TYLENOL [Concomitant]
     Active Substance: ACETAMINOPHEN
     Indication: PROCEDURAL PAIN
     Dosage: 650 MG, QID
     Route: 048
     Dates: start: 20171231, end: 20170102
  6. VITAMIN E                          /00110501/ [Concomitant]
     Active Substance: TOCOPHEROL
     Indication: HYPERCHOLESTEROLAEMIA
     Dosage: 1 DF, QD
     Route: 048
     Dates: start: 20140811, end: 20171129
  7. AMITRIPTYLINE [Concomitant]
     Active Substance: AMITRIPTYLINE
     Dosage: 20 MG, QD
     Route: 048
     Dates: start: 20181004, end: 20181007
  8. OXYMORPHONE [Concomitant]
     Active Substance: OXYMORPHONE
     Indication: COMPLEX REGIONAL PAIN SYNDROME
     Dosage: 10 MG, BID
     Route: 048
     Dates: start: 20140415
  9. OXYMORPHONE [Concomitant]
     Active Substance: OXYMORPHONE
     Indication: PROCEDURAL PAIN
     Dosage: 15 MG, BID
     Route: 048
     Dates: start: 20171231, end: 20180102
  10. ROSUVASTATIN. [Concomitant]
     Active Substance: ROSUVASTATIN
     Indication: HYPERCHOLESTEROLAEMIA
     Dosage: 20 MG, QD
     Route: 048
     Dates: start: 20180103
  11. TAMSULOSIN [Concomitant]
     Active Substance: TAMSULOSIN
     Indication: BENIGN PROSTATIC HYPERPLASIA
     Dosage: 0.4 MG, QD
     Route: 048
     Dates: start: 20171231, end: 20180102
  12. TORADOL [Concomitant]
     Active Substance: KETOROLAC TROMETHAMINE
     Indication: PROCEDURAL PAIN
     Dosage: 15 MG, QID
     Route: 042
     Dates: start: 20171231, end: 20180102
  13. BISOPROLOL [Concomitant]
     Active Substance: BISOPROLOL
     Indication: HYPERTENSION
     Dosage: 5 MG, QD
     Route: 048
     Dates: start: 20190204
  14. CLOPIDOGREL [Concomitant]
     Active Substance: CLOPIDOGREL BISULFATE
     Indication: CORONARY ARTERY DISEASE
     Dosage: 75 MG, QD
     Route: 048
     Dates: start: 20171231
  15. GABAPENTIN. [Concomitant]
     Active Substance: GABAPENTIN
     Indication: PAIN
     Dosage: 300 MG, TID
     Route: 048
     Dates: start: 20171227
  16. POTASSIUM CHLORIDE. [Concomitant]
     Active Substance: POTASSIUM CHLORIDE
     Indication: BLOOD POTASSIUM DECREASED
     Dosage: 100 MEQ, QD
     Route: 048
     Dates: start: 20180316
  17. SPIRONOLACTONE. [Concomitant]
     Active Substance: SPIRONOLACTONE
     Indication: FLUID RETENTION
     Dosage: 25 MG, QD
     Route: 048
     Dates: start: 20180829, end: 20181007
  18. LOTRISONE [Concomitant]
     Active Substance: BETAMETHASONE DIPROPIONATE\CLOTRIMAZOLE
     Indication: RASH
     Dosage: 1 DF, QD
     Route: 061
     Dates: start: 20190702
  19. OMEGA 3?6?9                        /01333901/ [Concomitant]
     Active Substance: OMEGA-3 FATTY ACIDS
     Indication: HYPERCHOLESTEROLAEMIA
     Dosage: 1 DF, QD
     Route: 048
     Dates: start: 20140429, end: 20171129
  20. PEPCID                             /00305201/ [Concomitant]
     Active Substance: ALUMINUM HYDROXIDE\MAGNESIUM CARBONATE
     Indication: DYSPEPSIA
     Dosage: 20 MG, BID
     Route: 048
     Dates: start: 20171221, end: 20180102
  21. PERCOCET                           /00446701/ [Concomitant]
     Active Substance: ACETAMINOPHEN\OXYCODONE HYDROCHLORIDE\OXYCODONE TEREPHTHALATE
     Indication: COMPLEX REGIONAL PAIN SYNDROME
     Dosage: 7.5?325 MG PRN
     Route: 048
     Dates: start: 20130722, end: 20160505
  22. PIROXICAM. [Concomitant]
     Active Substance: PIROXICAM
     Indication: COMPLEX REGIONAL PAIN SYNDROME
     Dosage: 10 MG, QD
     Route: 048
     Dates: start: 20170723
  23. POTASSIUM CHLORIDE. [Concomitant]
     Active Substance: POTASSIUM CHLORIDE
     Dosage: 20 MEQ, 5XDAY
     Route: 048
     Dates: start: 20181004, end: 20181007
  24. TAMSULOSIN [Concomitant]
     Active Substance: TAMSULOSIN
     Indication: POLLAKIURIA
     Dosage: 0.4 MG, BID
     Route: 048
     Dates: start: 20171227
  25. FLOMAX [Concomitant]
     Active Substance: TAMSULOSIN HYDROCHLORIDE
     Dosage: 0.8 MG, BID
     Route: 048
     Dates: start: 20170207, end: 20170811
  26. JUXTAPID [Suspect]
     Active Substance: LOMITAPIDE MESYLATE
     Dosage: 10 MG, QOD
     Dates: start: 20160305, end: 20160420
  27. JUXTAPID [Suspect]
     Active Substance: LOMITAPIDE MESYLATE
     Dosage: 10 MG, QD
     Dates: start: 20160421, end: 20170804
  28. AMITRIPTYLINE [Concomitant]
     Active Substance: AMITRIPTYLINE
     Indication: DEPRESSION
     Dosage: 10 MG, QD
     Route: 048
     Dates: start: 20150609, end: 20171115
  29. ASPIRIN                            /00002701/ [Concomitant]
     Active Substance: ASPIRIN
     Indication: CORONARY ARTERY DISEASE
     Dosage: 81 MG, QD
     Route: 048
     Dates: start: 20010808
  30. DICLOFENAC SODIUM. [Concomitant]
     Active Substance: DICLOFENAC SODIUM
     Indication: PAIN
     Dosage: 2?4 GRAMS PRN
     Route: 061
     Dates: start: 20190205
  31. EZETIMIBE. [Concomitant]
     Active Substance: EZETIMIBE
     Indication: HYPERCHOLESTEROLAEMIA
     Dosage: 10 MG, QD
     Route: 048
     Dates: start: 20050504
  32. AMIODARONE [Concomitant]
     Active Substance: AMIODARONE
     Indication: CORONARY ARTERY DISEASE
     Dosage: 400 MG, QD
     Route: 048
     Dates: start: 20171231, end: 20170102
  33. CRESTOR [Concomitant]
     Active Substance: ROSUVASTATIN CALCIUM
     Indication: HYPERCHOLESTEROLAEMIA
     Dosage: 10 MG, QD
     Route: 048
     Dates: start: 20040519, end: 20171229
  34. CYMBALTA [Concomitant]
     Active Substance: DULOXETINE HYDROCHLORIDE
     Indication: COMPLEX REGIONAL PAIN SYNDROME
     Dosage: 60 MG, QD
     Route: 048
     Dates: start: 20131009, end: 20170207
  35. CYMBALTA [Concomitant]
     Active Substance: DULOXETINE HYDROCHLORIDE
     Indication: DEPRESSION
     Dosage: 30 MG, QD
     Route: 048
     Dates: start: 20170207, end: 20170522
  36. DOXYCYCLINE. [Concomitant]
     Active Substance: DOXYCYCLINE
     Indication: ARTHROPOD BITE
     Dosage: 10 MG, QD
     Dates: start: 20150611, end: 20150701
  37. FLOMAX [Concomitant]
     Active Substance: TAMSULOSIN HYDROCHLORIDE
     Indication: POLLAKIURIA
     Dosage: 0.4 MG, QD
     Route: 048
     Dates: start: 20111130, end: 20170207
  38. LOVAZA [Concomitant]
     Active Substance: OMEGA-3-ACID ETHYL ESTERS
     Indication: HYPERCHOLESTEROLAEMIA
     Dosage: 1 G, BID
     Route: 048
     Dates: start: 20090529, end: 20170429
  39. LYRICA [Concomitant]
     Active Substance: PREGABALIN
     Indication: PROCEDURAL PAIN
     Dosage: 150 MG, TID
     Route: 048
     Dates: start: 20171231, end: 20180102
  40. ZAROXOLYN [Concomitant]
     Active Substance: METOLAZONE
     Indication: FLUID RETENTION
     Dosage: 5 MG, BID
     Route: 048
     Dates: start: 20180205, end: 20180208
  41. JUXTAPID [Suspect]
     Active Substance: LOMITAPIDE MESYLATE
     Indication: TYPE IIA HYPERLIPIDAEMIA
     Dosage: 10 MG, QD
     Dates: start: 20140522, end: 20160112
  42. JUXTAPID [Suspect]
     Active Substance: LOMITAPIDE MESYLATE
     Dosage: 5 MG, QD
     Dates: start: 20160113, end: 20160304
  43. AMITRIPTYLINE [Concomitant]
     Active Substance: AMITRIPTYLINE
     Dosage: 25 MG, QD
     Route: 048
     Dates: start: 20170528
  44. EVOLOCUMAB [Concomitant]
     Active Substance: EVOLOCUMAB
     Indication: HYPERLIPIDAEMIA
     Dosage: 140 MG ONCE DAILY EVERY 14 DAYS
     Route: 058
     Dates: start: 20170823
  45. OXYCODONE [Concomitant]
     Active Substance: OXYCODONE
     Indication: PAIN
     Dosage: 5 MG, PRN
     Route: 048
     Dates: start: 20171231, end: 20180102
  46. PREGABALIN. [Concomitant]
     Active Substance: PREGABALIN
     Indication: COMPLEX REGIONAL PAIN SYNDROME
     Dosage: 150 MG, TID
     Route: 048
     Dates: start: 20130723
  47. BISOPROLOL FUMARATE. [Concomitant]
     Active Substance: BISOPROLOL FUMARATE
     Indication: HYPERTENSION
     Dosage: 10 MG, QD
     Route: 048
     Dates: start: 20180213, end: 20180204
  48. BUMEX [Concomitant]
     Active Substance: BUMETANIDE
     Indication: FLUID RETENTION
     Dosage: 2 MG, TID
     Route: 048
     Dates: start: 20180316, end: 20180402
  49. MIRALAX [Concomitant]
     Active Substance: POLYETHYLENE GLYCOL 3350
     Indication: CONSTIPATION
     Dosage: 17 G, QD
     Route: 048
     Dates: start: 20180109
  50. OXYCODONE [Concomitant]
     Active Substance: OXYCODONE
     Indication: PROCEDURAL PAIN
     Dosage: 5 MG, PRN
     Route: 048
     Dates: start: 20180310
  51. K?DUR [Concomitant]
     Active Substance: POTASSIUM CHLORIDE
     Indication: BLOOD POTASSIUM DECREASED
     Dosage: 20 MEQ, QD
     Route: 048
     Dates: start: 20171231, end: 20180102

REACTIONS (1)
  - Pain in extremity [Recovered/Resolved with Sequelae]

NARRATIVE: CASE EVENT DATE: 20190731
